FAERS Safety Report 10420228 (Version 2)
Quarter: 2014Q4

REPORT INFORMATION
  Report Type: Spontaneous
  Country: US (occurrence: None)
  Receive Date: 20140701
  Receipt Date: 20141223
  Transmission Date: 20150528
  Serious: No
  Sender: FDA-Public Use
  Company Number: 1000066061

PATIENT
  Age: 55 Year
  Sex: Male

DRUGS (9)
  1. LORAZEPAM (LORAZEPAM) [Concomitant]
     Active Substance: LORAZEPAM
  2. METFORMIN [Concomitant]
     Active Substance: METFORMIN HYDROCHLORIDE
  3. LINZESS [Suspect]
     Active Substance: LINACLOTIDE
     Indication: CONSTIPATION
     Dosage: 145 MCG (145 MCG, 1 IN 1 D), ORAL
     Route: 048
     Dates: start: 20140330, end: 2014
  4. CYMBALTA [Concomitant]
     Active Substance: DULOXETINE HYDROCHLORIDE
  5. WELLBUTRIN [Concomitant]
     Active Substance: BUPROPION HYDROCHLORIDE
  6. FLOMAX (TAMSULOSIN) [Concomitant]
  7. SEROQUEL [Concomitant]
     Active Substance: QUETIAPINE FUMARATE
  8. DOXEPIN (DOXEPIN) [Concomitant]
  9. PROTONIX (PANTOPRAZOLE SODIUIM SESQUIHYDRATE) (PANTOPRAZOLE SODIUIM SESQUIHYDRATE) [Concomitant]

REACTIONS (2)
  - Diarrhoea [None]
  - Abdominal pain [None]

NARRATIVE: CASE EVENT DATE: 20140330
